FAERS Safety Report 21813058 (Version 1)
Quarter: 2023Q1

REPORT INFORMATION
  Report Type: Other
  Country: JP (occurrence: None)
  Receive Date: 20230103
  Receipt Date: 20230103
  Transmission Date: 20230418
  Serious: Yes (Other)
  Sender: FDA-Public Use
  Company Number: JP-USAntibiotics-000097

PATIENT
  Age: 1 Year
  Sex: Female

DRUGS (1)
  1. AMOXICILLIN [Suspect]
     Active Substance: AMOXICILLIN
     Indication: Lymphadenitis
     Route: 048

REACTIONS (3)
  - Lymph node abscess [Recovered/Resolved]
  - Drug ineffective [Recovered/Resolved]
  - Disease progression [Recovered/Resolved]
